FAERS Safety Report 6269510-9 (Version None)
Quarter: 2009Q3

REPORT INFORMATION
  Report Type: 
  Country: None (occurrence: None)
  Receive Date: 20090715
  Receipt Date: 20081210
  Transmission Date: 20100115
  Serious: No
  Sender: FDA-Public Use
  Company Number: US-TYCO HEALTHCARE/MALLINCKRODT-T200802093

PATIENT

DRUGS (5)
  1. OXYCODONE HCL [Suspect]
     Indication: ABDOMINAL PAIN
     Dosage: 1-2 TABS EVERY 4-6 HRS AS NEEDED
     Route: 048
     Dates: start: 20040101
  2. OXYCODONE HCL [Suspect]
     Indication: VULVOVAGINAL PAIN
  3. OXYCODONE HCL [Suspect]
     Indication: ARTHRALGIA
  4. PREMARIN [Concomitant]
     Indication: HORMONE REPLACEMENT THERAPY
     Dosage: UNK, QD
     Route: 048
     Dates: start: 19960101
  5. VITAMIN C                          /00008001/ [Concomitant]
     Indication: SUPPLEMENTATION THERAPY
     Dosage: UNK, QD
     Route: 048

REACTIONS (4)
  - NASOPHARYNGITIS [None]
  - NAUSEA [None]
  - SEDATION [None]
  - SOMNOLENCE [None]
